FAERS Safety Report 4379493-4 (Version None)
Quarter: 2004Q2

REPORT INFORMATION
  Report Type: 
  Country: None (occurrence: None)
  Receive Date: 20040601
  Receipt Date: 20040406
  Transmission Date: 20050107
  Serious: No
  Sender: FDA-Public Use
  Company Number: WAES 0404USA00787

PATIENT
  Sex: Female

DRUGS (9)
  1. ZETIA [Suspect]
     Indication: HYPERCHOLESTEROLAEMIA
     Dosage: 10 MG/DAILY/PO
     Route: 048
     Dates: start: 20040329
  2. AMBIEN [Concomitant]
  3. FLONASE [Concomitant]
  4. LOPROX [Concomitant]
  5. SKELAXIN [Concomitant]
  6. WYGESIC TABLETS [Concomitant]
  7. Z-PAK [Concomitant]
  8. CLONAZEPAM [Concomitant]
  9. DOXEPIN HYDROCHLORIDE [Concomitant]

REACTIONS (1)
  - MUSCLE CRAMP [None]
